FAERS Safety Report 22827773 (Version 4)
Quarter: 2024Q2

REPORT INFORMATION
  Report Type: Spontaneous
  Country: US (occurrence: US)
  Receive Date: 20230816
  Receipt Date: 20240522
  Transmission Date: 20240716
  Serious: No
  Sender: FDA-Public Use
  Company Number: US-PFIZER INC-PV202300017430

PATIENT
  Age: 81 Year
  Sex: Female
  Weight: 71.7 kg

DRUGS (3)
  1. IBRANCE [Suspect]
     Active Substance: PALBOCICLIB
     Indication: Breast cancer female
     Dosage: 100 MG, CYCLIC (DAILY FOR 21 DAYS WITH 7 DAYS OFF)
     Route: 048
  2. FASLODEX [Concomitant]
     Active Substance: FULVESTRANT
     Dosage: UNK, MONTHLY (EVERY 4 WEEKS)
     Dates: start: 2021
  3. ELIQUIS [Concomitant]
     Active Substance: APIXABAN
     Dosage: 5 MG, 2X/DAY (TAKE BY MOUTH 2 (TWO) TIMES A DAY)
     Route: 048

REACTIONS (14)
  - Diarrhoea [Recovering/Resolving]
  - Serum ferritin increased [Unknown]
  - White blood cell count decreased [Unknown]
  - Mean cell volume increased [Unknown]
  - Mean cell haemoglobin increased [Unknown]
  - Platelet count decreased [Unknown]
  - Neutrophil count decreased [Unknown]
  - Lymphocyte count decreased [Unknown]
  - Polychromasia [Unknown]
  - Protein total decreased [Unknown]
  - Blood lactate dehydrogenase increased [Unknown]
  - Red blood cell count decreased [Unknown]
  - Red cell distribution width increased [Unknown]
  - Elliptocytosis [Unknown]

NARRATIVE: CASE EVENT DATE: 20240401
